FAERS Safety Report 14312021 (Version 4)
Quarter: 2018Q1

REPORT INFORMATION
  Report Type: Spontaneous
  Country: FR (occurrence: FR)
  Receive Date: 20171221
  Receipt Date: 20180108
  Transmission Date: 20180509
  Serious: Yes (Death, Other)
  Sender: FDA-Public Use
  Company Number: FR-IPSEN BIOPHARMACEUTICALS, INC.-2017-11163

PATIENT
  Age: 0 Year
  Sex: Male
  Weight: 2.9 kg

DRUGS (5)
  1. INCRELEX [Suspect]
     Active Substance: MECASERMIN
     Indication: OFF LABEL USE
     Route: 058
     Dates: start: 2017
  2. INCRELEX [Suspect]
     Active Substance: MECASERMIN
     Indication: INSULIN RESISTANCE SYNDROME
     Route: 058
     Dates: start: 20170914, end: 2017
  3. UVESTEROL [Concomitant]
     Active Substance: ASCORBIC ACID\ERGOCALCIFEROL\RETINOL\TOCOPHEROL
     Dates: start: 20170831, end: 20171212
  4. PEDIAVEN [Concomitant]
     Route: 042
     Dates: start: 20171201, end: 20171212
  5. OMEPRAZOLE. [Concomitant]
     Active Substance: OMEPRAZOLE
     Route: 042
     Dates: start: 20171129, end: 20171212

REACTIONS (13)
  - Product use issue [Unknown]
  - Oedema [Unknown]
  - Wrong technique in product usage process [Unknown]
  - Off label use [Unknown]
  - Gastrointestinal disorder [Unknown]
  - General physical health deterioration [Unknown]
  - Cardio-respiratory arrest [Fatal]
  - Hypertrophic cardiomyopathy [Unknown]
  - Drug administered to patient of inappropriate age [Unknown]
  - Intestinal obstruction [Unknown]
  - Hypoalbuminaemia [Unknown]
  - Ascites [Unknown]
  - Multiple organ dysfunction syndrome [Fatal]

NARRATIVE: CASE EVENT DATE: 2017
